FAERS Safety Report 5369489-8 (Version None)
Quarter: 2007Q2

REPORT INFORMATION
  Report Type: 
  Country: None (occurrence: None)
  Receive Date: 20070625
  Receipt Date: 20030711
  Transmission Date: 20071010
  Serious: Yes (Hospitalization)
  Sender: FDA-Public Use
  Company Number: PHBS2003BE14835

PATIENT
  Age: 68 Year
  Sex: Male

DRUGS (9)
  1. ERGOTAMINE TARTRATE [Suspect]
     Dosage: VIA HTX (HEART TRANSPLANTATION)
     Route: 065
  2. AZATHIOPRINE [Concomitant]
     Route: 065
  3. CYCLOSPORINE [Concomitant]
     Dosage: 100 MG, BID
     Route: 065
  4. PREDNISONE TAB [Concomitant]
     Dosage: 5 MG/D
     Route: 065
  5. IMMUNOSUPPRESSIVE AGENTS [Concomitant]
     Route: 065
  6. AMLODIPINE [Concomitant]
     Dosage: 5 MG/D
     Route: 065
  7. FUROSEMIDE [Concomitant]
     Dosage: 20 MG/D
     Route: 065
  8. LISINOPRIL [Concomitant]
     Dosage: 20 MG/D
     Route: 065
  9. CALCIUM ANTAGONIST [Concomitant]
     Route: 065

REACTIONS (11)
  - AORTIC DISSECTION [None]
  - AORTIC VALVE INCOMPETENCE [None]
  - CARDIAC MURMUR [None]
  - CHEST PAIN [None]
  - DYSPNOEA [None]
  - HYPERTENSION [None]
  - MITRAL VALVE PROLAPSE [None]
  - MYOCARDIAL INFARCTION [None]
  - PULMONARY HYPERTENSION [None]
  - STERNOTOMY [None]
  - TRICUSPID VALVE PROLAPSE [None]
